FAERS Safety Report 6907393-1 (Version None)
Quarter: 2010Q3

REPORT INFORMATION
  Report Type: 
  Country: None (occurrence: None)
  Receive Date: 20100805
  Receipt Date: 20100722
  Transmission Date: 20110219
  Serious: Yes (Other)
  Sender: FDA-Public Use
  Company Number: US-RANBAXY-2010US-36305

PATIENT

DRUGS (3)
  1. CALAN [Suspect]
     Indication: HYPERTENSION
     Dosage: 240 MG, BID
     Route: 048
     Dates: start: 19930101, end: 19961201
  2. CARDURA [Suspect]
     Indication: HYPERTENSION
     Dosage: 1MG EVERY DAY
     Route: 048
     Dates: start: 19961201, end: 19961201
  3. MEVACOR [Concomitant]
     Indication: PRODUCT USED FOR UNKNOWN INDICATION
     Dosage: UNK
     Route: 065

REACTIONS (4)
  - ATRIOVENTRICULAR BLOCK FIRST DEGREE [None]
  - DIZZINESS [None]
  - DRUG INTERACTION [None]
  - SYNCOPE [None]
